FAERS Safety Report 23961983 (Version 1)
Quarter: 2024Q2

REPORT INFORMATION
  Report Type: Spontaneous
  Country: US (occurrence: US)
  Receive Date: 20240611
  Receipt Date: 20240611
  Transmission Date: 20240715
  Serious: No
  Sender: FDA-Public Use
  Company Number: US-RIGEL Pharmaceuticals, INC-2023FOS000491

PATIENT
  Sex: Female
  Weight: 133.79 kg

DRUGS (4)
  1. TAVALISSE [Suspect]
     Active Substance: FOSTAMATINIB
     Indication: Immune thrombocytopenia
     Dosage: 150 MG, BID
     Route: 048
     Dates: start: 20230421
  2. APPLE CIDER VINEGAR [CYANOCOBALAMIN;FOLIC ACID;MALUS SPP. VINEGAR EXTR [Concomitant]
     Indication: Product used for unknown indication
     Dosage: UNK, QD
  3. VITAMINS [Concomitant]
     Active Substance: VITAMINS
     Indication: Product used for unknown indication
     Dosage: UNK, QD
  4. NPLATE [Concomitant]
     Active Substance: ROMIPLOSTIM
     Indication: Product used for unknown indication
     Dosage: UNK, WEEKLY

REACTIONS (8)
  - Unevaluable event [Unknown]
  - Epistaxis [Unknown]
  - Vaginal haemorrhage [Unknown]
  - Decreased appetite [Unknown]
  - Pain [Unknown]
  - Migraine [Unknown]
  - Adverse reaction [Unknown]
  - Nausea [Unknown]

NARRATIVE: CASE EVENT DATE: 20230101
